FAERS Safety Report 20102770 (Version 1)
Quarter: 2021Q4

REPORT INFORMATION
  Report Type: Spontaneous
  Country: US (occurrence: US)
  Receive Date: 20211123
  Receipt Date: 20211123
  Transmission Date: 20220303
  Serious: Yes (Other)
  Sender: FDA-Public Use
  Company Number: US-GLAXOSMITHKLINE-US2021GSK238780

PATIENT

DRUGS (8)
  1. ZANTAC [Suspect]
     Active Substance: RANITIDINE HYDROCHLORIDE
     Indication: Dyspepsia
     Dosage: 150 MG, QD
     Route: 065
     Dates: start: 200001, end: 201709
  2. ZANTAC [Suspect]
     Active Substance: RANITIDINE HYDROCHLORIDE
     Indication: Intestinal ulcer
  3. ZANTAC [Suspect]
     Active Substance: RANITIDINE HYDROCHLORIDE
     Indication: Dyspepsia
     Dosage: 150 MG, QD
     Route: 065
     Dates: start: 200001, end: 201709
  4. ZANTAC [Suspect]
     Active Substance: RANITIDINE HYDROCHLORIDE
     Indication: Intestinal ulcer
  5. RANITIDINE [Suspect]
     Active Substance: RANITIDINE
     Indication: Dyspepsia
     Dosage: UNK, QD
     Route: 065
     Dates: start: 200001, end: 201709
  6. RANITIDINE [Suspect]
     Active Substance: RANITIDINE
     Indication: Intestinal ulcer
  7. RANITIDINE [Suspect]
     Active Substance: RANITIDINE
     Indication: Dyspepsia
     Dosage: UNK, QD
     Route: 065
     Dates: start: 200001, end: 201709
  8. RANITIDINE [Suspect]
     Active Substance: RANITIDINE
     Indication: Intestinal ulcer

REACTIONS (1)
  - Breast cancer [Unknown]
